FAERS Safety Report 7634428-3 (Version None)
Quarter: 2011Q3

REPORT INFORMATION
  Report Type: 
  Country: None (occurrence: None)
  Receive Date: 20110725
  Receipt Date: 20110713
  Transmission Date: 20111222
  Serious: Yes (Other)
  Sender: FDA-Public Use
  Company Number: PHHY2010US67744

PATIENT
  Sex: Female
  Weight: 55 kg

DRUGS (6)
  1. GLEEVEC [Suspect]
     Indication: CHRONIC MYELOID LEUKAEMIA
     Dosage: 400 MG, QD
     Route: 048
     Dates: start: 20100918
  2. ASPIRIN [Concomitant]
     Dosage: 810 MG, QD
     Route: 048
  3. ATIVAN [Concomitant]
     Indication: ANXIETY
     Dosage: 0.5 MG Q12 HRLY PRN
     Route: 048
  4. GLEEVEC [Suspect]
     Dosage: 300 MG DAILY
     Route: 048
     Dates: start: 20100914
  5. ELAVIL [Concomitant]
     Indication: DEPRESSION
     Dosage: 10 MG QHS
     Route: 048
  6. LOVAZA [Concomitant]
     Indication: HYPERLIPIDAEMIA
     Dosage: 200 MG, QD
     Route: 048

REACTIONS (12)
  - UPPER RESPIRATORY TRACT INFECTION [None]
  - NAUSEA [None]
  - OROPHARYNGEAL PAIN [None]
  - WEIGHT FLUCTUATION [None]
  - FLUSHING [None]
  - HAEMORRHOIDS [None]
  - SWELLING [None]
  - MYALGIA [None]
  - LOWER RESPIRATORY TRACT INFECTION [None]
  - INSOMNIA [None]
  - PERIORBITAL OEDEMA [None]
  - HAEMORRHAGE [None]
